FAERS Safety Report 5965997-7 (Version None)
Quarter: 2008Q4

REPORT INFORMATION
  Report Type: 
  Country: None (occurrence: None)
  Receive Date: 20081121
  Receipt Date: 20081121
  Transmission Date: 20090506
  Serious: Yes (Life-Threatening, Hospitalization)
  Sender: FDA-Public Use
  Company Number: None

PATIENT
  Age: 52 Year
  Sex: Female
  Weight: 110.2241 kg

DRUGS (1)
  1. METFORMIN HCL [Suspect]
     Indication: TYPE 2 DIABETES MELLITUS
     Dosage: 1000 2X'S DAILY PO
     Route: 048
     Dates: start: 20060101, end: 20081023

REACTIONS (8)
  - AMNESIA [None]
  - CARDIAC FAILURE [None]
  - COMA [None]
  - DIALYSIS [None]
  - FALL [None]
  - LIVER INJURY [None]
  - RENAL FAILURE [None]
  - SEPSIS [None]
